FAERS Safety Report 4791898-6 (Version None)
Quarter: 2005Q4

REPORT INFORMATION
  Report Type: 
  Country: None (occurrence: None)
  Receive Date: 20051007
  Receipt Date: 20050824
  Transmission Date: 20060501
  Serious: Yes (Hospitalization, Disabling)
  Sender: FDA-Public Use
  Company Number: FR-NOVOPROD-246474

PATIENT
  Age: 49 Year
  Sex: Male

DRUGS (2)
  1. NOVOSEVEN [Suspect]
     Indication: HAEMORRHAGE CONTROL
     Dosage: 9.6 MG, UNK
     Route: 042
     Dates: start: 20050118, end: 20050118
  2. ACLOTINE [Concomitant]
     Indication: THROMBOSIS
     Dosage: 4500 IU, UNK
     Route: 042
     Dates: start: 20050118, end: 20050119

REACTIONS (1)
  - ARTERIAL THROMBOSIS [None]
